FAERS Safety Report 15145396 (Version 5)
Quarter: 2019Q4

REPORT INFORMATION
  Report Type: Spontaneous
  Country: US (occurrence: US)
  Receive Date: 20180713
  Receipt Date: 20191121
  Transmission Date: 20200122
  Serious: No
  Sender: FDA-Public Use
  Company Number: US-INTERCEPT-PMOCA2018000690

PATIENT
  Age: 55 Year
  Sex: Female

DRUGS (9)
  1. OCALIVA [Suspect]
     Active Substance: OBETICHOLIC ACID
     Dosage: 10 MG, QW
     Route: 048
  2. VITAMINS NOS [Concomitant]
     Active Substance: VITAMINS
  3. VIT D [Concomitant]
     Active Substance: VITAMIN D NOS
  4. OCALIVA [Suspect]
     Active Substance: OBETICHOLIC ACID
     Dosage: 10 MG, 3X/WK
     Route: 048
     Dates: start: 201703
  5. OCALIVA [Suspect]
     Active Substance: OBETICHOLIC ACID
     Dosage: 10 MG, QD
     Route: 048
     Dates: start: 20190113
  6. FISH OIL [Concomitant]
     Active Substance: FISH OIL
  7. OCALIVA [Suspect]
     Active Substance: OBETICHOLIC ACID
     Indication: PRIMARY BILIARY CHOLANGITIS
     Dosage: 5 MG, UNK
     Route: 065
     Dates: end: 20180310
  8. OCALIVA [Suspect]
     Active Substance: OBETICHOLIC ACID
     Dosage: 10 MG, QD
     Route: 065
     Dates: start: 201811
  9. URSODIOL. [Concomitant]
     Active Substance: URSODIOL

REACTIONS (11)
  - Myalgia [Unknown]
  - Insurance issue [Recovered/Resolved]
  - Joint swelling [Unknown]
  - Arthralgia [Unknown]
  - Bone density decreased [Unknown]
  - Constipation [Unknown]
  - Eczema [Unknown]
  - Insomnia [Unknown]
  - Peripheral swelling [Not Recovered/Not Resolved]
  - Pruritus [Not Recovered/Not Resolved]
  - Product dose omission [Unknown]

NARRATIVE: CASE EVENT DATE: 201804
